FAERS Safety Report 17404861 (Version 7)
Quarter: 2021Q4

REPORT INFORMATION
  Report Type: Report from Study
  Country: None (occurrence: JP)
  Receive Date: 20200211
  Receipt Date: 20211021
  Transmission Date: 20220303
  Serious: Yes (Hospitalization)
  Sender: FDA-Public Use
  Company Number: JP-ABBVIE-20K-087-3268263-00

PATIENT
  Age: 76 Year
  Sex: Female
  Weight: 60 kg

DRUGS (11)
  1. CARBIDOPA\LEVODOPA [Suspect]
     Active Substance: CARBIDOPA\LEVODOPA
     Indication: Parkinson^s disease
     Dosage: MD : 7 ML CD : 2.7 ML/HR X 16 HRS ED : 1 ML/UNIT X 1 TIMES
     Route: 050
     Dates: start: 20180606, end: 20190124
  2. CARBIDOPA\LEVODOPA [Suspect]
     Active Substance: CARBIDOPA\LEVODOPA
     Dosage: MD :10 ML CD : 2.8 ML/HR X 16 HRS ED : 1 ML/UNIT X 1 TIMES
     Route: 050
     Dates: start: 20190125, end: 20190719
  3. CARBIDOPA\LEVODOPA [Suspect]
     Active Substance: CARBIDOPA\LEVODOPA
     Dosage: MD: 10 ML CD: 2.9 ML/HR X 16 HRS ED: 1 ML/UNIT X 1
     Route: 050
     Dates: start: 20190719, end: 20191211
  4. CARBIDOPA\LEVODOPA [Suspect]
     Active Substance: CARBIDOPA\LEVODOPA
     Dosage: MD: 10 ML?CD: 3.0 ML/HR X 16 HRS?ED: 1 ML/UNIT X 2
     Route: 050
     Dates: start: 20191211
  5. PRAMIPEXOLE DIHYDROCHLORIDE [Concomitant]
     Active Substance: PRAMIPEXOLE DIHYDROCHLORIDE
     Indication: Parkinson^s disease
     Route: 048
     Dates: start: 20180706
  6. OLMESARTAN MEDOXOMIL [Concomitant]
     Active Substance: OLMESARTAN MEDOXOMIL
     Indication: Product used for unknown indication
     Route: 048
  7. LUBIPROSTONE [Concomitant]
     Active Substance: LUBIPROSTONE
     Indication: Product used for unknown indication
     Route: 048
  8. MAGNESIUM OXIDE [Concomitant]
     Active Substance: MAGNESIUM OXIDE
     Indication: Product used for unknown indication
     Route: 048
  9. RABEPRAZOLE SODIUM [Concomitant]
     Active Substance: RABEPRAZOLE SODIUM
     Indication: Product used for unknown indication
     Route: 048
  10. SENNOSIDES [Concomitant]
     Active Substance: SENNOSIDES
     Indication: Product used for unknown indication
     Route: 048
  11. SHAKUYAKUKANZOTO [Concomitant]
     Active Substance: HERBALS
     Indication: Product used for unknown indication
     Route: 048

REACTIONS (9)
  - Femur fracture [Unknown]
  - Cholecystitis [Unknown]
  - Subarachnoid haemorrhage [Unknown]
  - Malaise [Unknown]
  - Hospitalisation [Recovered/Resolved]
  - Stoma site discharge [Unknown]
  - Stoma site erythema [Unknown]
  - Stoma site pain [Unknown]
  - Stoma site pruritus [Unknown]

NARRATIVE: CASE EVENT DATE: 20200801
